FAERS Safety Report 7297062-3 (Version None)
Quarter: 2011Q1

REPORT INFORMATION
  Report Type: 
  Country: None (occurrence: None)
  Receive Date: 20110216
  Receipt Date: 20110210
  Transmission Date: 20110831
  Serious: Yes (Other)
  Sender: FDA-Public Use
  Company Number: JP-JNJFOC-20091206913

PATIENT
  Sex: Female

DRUGS (1)
  1. RISPERDAL [Suspect]
     Indication: PRODUCT USED FOR UNKNOWN INDICATION
     Route: 048

REACTIONS (8)
  - TACHYCARDIA [None]
  - PALPITATIONS [None]
  - HYPERPROLACTINAEMIA [None]
  - BREAST CANCER FEMALE [None]
  - BREAST CANCER [None]
  - POLLAKIURIA [None]
  - ARRHYTHMIA [None]
  - GALACTORRHOEA [None]
